FAERS Safety Report 8872260 (Version 1)
Quarter: 2012Q4

REPORT INFORMATION
  Report Type: 
  Country: US (occurrence: US)
  Receive Date: 20121030
  Receipt Date: 20121030
  Transmission Date: 20130627
  Serious: No
  Sender: FDA-Public Use
  Company Number: US-009507513-1210USA012379

PATIENT
  Sex: Female

DRUGS (4)
  1. VICTRELIS [Suspect]
     Dosage: 800 mg, tid
     Route: 048
     Dates: start: 2012
  2. RIBAVIRIN [Suspect]
     Dosage: 200 mg, UNK
  3. PEGASYS [Suspect]
     Dosage: 180 MCG/M
  4. CELEXA [Concomitant]
     Dosage: 20 mg, UNK

REACTIONS (2)
  - Productive cough [Unknown]
  - Pyrexia [Unknown]
